FAERS Safety Report 15254709 (Version 1)
Quarter: 2018Q3

REPORT INFORMATION
  Report Type: Spontaneous
  Country: US (occurrence: US)
  Receive Date: 20180808
  Receipt Date: 20180808
  Transmission Date: 20181010
  Serious: No
  Sender: FDA-Public Use
  Company Number: US-SA-2018SA214121

PATIENT
  Sex: Female

DRUGS (9)
  1. FOSAMAX [Concomitant]
     Active Substance: ALENDRONATE SODIUM
  2. LEVOTHYROXIN [Concomitant]
     Active Substance: LEVOTHYROXINE
  3. VITAMIN B12 [Concomitant]
     Active Substance: CYANOCOBALAMIN
  4. ALENDRONATE [Concomitant]
     Active Substance: ALENDRONATE SODIUM
  5. ROPINIROLE. [Concomitant]
     Active Substance: ROPINIROLE
  6. CLONAZEPAM. [Concomitant]
     Active Substance: CLONAZEPAM
  7. AUBAGIO [Suspect]
     Active Substance: TERIFLUNOMIDE
     Dosage: 1 TABLET
     Route: 048
  8. FLUDROCORTISON [Concomitant]
     Active Substance: FLUDROCORTISONE
  9. LOVASTATIN. [Concomitant]
     Active Substance: LOVASTATIN

REACTIONS (1)
  - Arthralgia [Not Recovered/Not Resolved]
